FAERS Safety Report 6890993-5 (Version None)
Quarter: 2010Q3

REPORT INFORMATION
  Report Type: 
  Country: None (occurrence: None)
  Receive Date: 20100731
  Receipt Date: 20090429
  Transmission Date: 20110219
  Serious: No
  Sender: FDA-Public Use
  Company Number: US-PFIZER INC-2009155030

PATIENT
  Sex: Female
  Weight: 79.365 kg

DRUGS (1)
  1. LIPITOR [Suspect]
     Indication: BLOOD CHOLESTEROL INCREASED
     Dosage: UNK

REACTIONS (3)
  - BLOOD CHOLESTEROL ABNORMAL [None]
  - GAIT DISTURBANCE [None]
  - MUSCLE SPASMS [None]
